FAERS Safety Report 18876745 (Version 1)
Quarter: 2021Q1

REPORT INFORMATION
  Report Type: Other
  Country: CA (occurrence: CA)
  Receive Date: 20210211
  Receipt Date: 20210211
  Transmission Date: 20210420
  Serious: Yes (Hospitalization, Other)
  Sender: FDA-Public Use
  Company Number: CA-CELLTRION INC.-2021CA001463

PATIENT

DRUGS (2)
  1. RITUXIMAB (UNKNOWN) [Suspect]
     Active Substance: RITUXIMAB
     Indication: RHEUMATOID ARTHRITIS
     Dosage: UNK
     Route: 065
  2. RITUXIMAB (UNKNOWN) [Suspect]
     Active Substance: RITUXIMAB
     Dosage: 1000 MILLIGRAM, 1 EVERY 2 WEEKS
     Route: 042

REACTIONS (9)
  - Unevaluable event [Unknown]
  - Poor venous access [Unknown]
  - Hospitalisation [Unknown]
  - Fear of injection [Unknown]
  - Product use issue [Unknown]
  - Blood pressure fluctuation [Unknown]
  - Intentional dose omission [Unknown]
  - Circumstance or information capable of leading to medication error [Unknown]
  - Contusion [Unknown]
